FAERS Safety Report 6445623-3 (Version None)
Quarter: 2009Q4

REPORT INFORMATION
  Report Type: 
  Country: None (occurrence: None)
  Receive Date: 20091118
  Receipt Date: 20091111
  Transmission Date: 20100525
  Serious: Yes (Death)
  Sender: FDA-Public Use
  Company Number: US-GILEAD-2009-0025378

PATIENT
  Sex: Female

DRUGS (14)
  1. LETAIRIS [Suspect]
     Indication: PULMONARY ARTERIAL HYPERTENSION
     Route: 048
     Dates: start: 20091012
  2. TADALAFIL [Concomitant]
  3. LASIX [Concomitant]
  4. METOPROLOL [Concomitant]
  5. SPIRONOLACTONE [Concomitant]
  6. DIGOXIN [Concomitant]
  7. ADVAIR DISKUS 100/50 [Concomitant]
  8. ALBUTEROL [Concomitant]
  9. LEXAPRO [Concomitant]
  10. LORAZEPAM [Concomitant]
  11. TYLENOL (CAPLET) [Concomitant]
  12. ASCORBIC ACID [Concomitant]
  13. IRON [Concomitant]
  14. ASPIRIN [Concomitant]

REACTIONS (1)
  - DEATH [None]
